FAERS Safety Report 11480882 (Version 1)
Quarter: 2015Q3

REPORT INFORMATION
  Report Type: Report from Study
  Country: US (occurrence: US)
  Receive Date: 20150909
  Receipt Date: 20150909
  Transmission Date: 20151125
  Serious: Yes (Other)
  Sender: FDA-Public Use
  Company Number: US-BRISTOL-MYERS SQUIBB COMPANY-BMS-2015-059153

PATIENT
  Age: 73 Year
  Sex: Female
  Weight: 95 kg

DRUGS (1)
  1. ABATACEPT [Suspect]
     Active Substance: ABATACEPT
     Indication: RHEUMATOID ARTHRITIS
     Dosage: 125 MG/ML, UNK
     Route: 058
     Dates: start: 201502, end: 201506

REACTIONS (6)
  - Diverticulitis [Unknown]
  - Fungal infection [Unknown]
  - Escherichia infection [Unknown]
  - Gastric polyps [Unknown]
  - Weight decreased [Unknown]
  - Cyst [Unknown]

NARRATIVE: CASE EVENT DATE: 20150518
